FAERS Safety Report 13195820 (Version 7)
Quarter: 2017Q4

REPORT INFORMATION
  Report Type: Report from Study
  Country: CA (occurrence: CA)
  Receive Date: 20170208
  Receipt Date: 20171023
  Transmission Date: 20180320
  Serious: Yes (Other)
  Sender: FDA-Public Use
  Company Number: PHHY2017CA019543

PATIENT
  Age: 55 Year
  Sex: Male
  Weight: 108.4 kg

DRUGS (11)
  1. ENTRESTO [Suspect]
     Active Substance: SACUBITRIL\VALSARTAN
     Dosage: 49/51 MG (49 MG SACUBITRIL AND 51MG VALSARTAN) BID
     Route: 048
     Dates: start: 20161007, end: 20161028
  2. ROSUVASTATIN. [Concomitant]
     Active Substance: ROSUVASTATIN
     Indication: PRODUCT USED FOR UNKNOWN INDICATION
     Dosage: 10 MG, UNK
     Route: 048
     Dates: start: 20160915
  3. PREGABALINE [Concomitant]
     Active Substance: PREGABALIN
     Indication: PRODUCT USED FOR UNKNOWN INDICATION
     Dosage: 75 MG, UNK
     Route: 065
  4. FUROSEMIDE. [Concomitant]
     Active Substance: FUROSEMIDE
     Indication: PRODUCT USED FOR UNKNOWN INDICATION
     Dosage: 220 MG, UNK
     Route: 048
     Dates: start: 20170228, end: 20170516
  5. ENTRESTO [Suspect]
     Active Substance: SACUBITRIL\VALSARTAN
     Dosage: 97/103 MG (97 MG SACUBITRIL AND 103 MG VALSARTAN) BID
     Route: 048
     Dates: start: 20161029, end: 20170629
  6. SPIRONOLACTONE. [Concomitant]
     Active Substance: SPIRONOLACTONE
     Indication: PRODUCT USED FOR UNKNOWN INDICATION
     Dosage: 12.5 MG, UNK
     Route: 048
     Dates: start: 20160824
  7. ENTRESTO [Suspect]
     Active Substance: SACUBITRIL\VALSARTAN
     Dosage: 1 TABLET (49 MG SACUBITRIL AND 51MG VALSARTAN) AND 1 TABLET (97 MG SACUBITRIL AND 103 MG VALSARTAN)
     Route: 048
     Dates: start: 20170630
  8. LAX-A-DAY [Concomitant]
     Indication: PRODUCT USED FOR UNKNOWN INDICATION
     Route: 005
  9. METOPROLOL TARTRATE. [Concomitant]
     Active Substance: METOPROLOL TARTRATE
     Indication: PRODUCT USED FOR UNKNOWN INDICATION
     Dosage: 37.5 MG, UNK
     Route: 048
     Dates: start: 20161110, end: 20170622
  10. CLOPIDOGREL [Concomitant]
     Active Substance: CLOPIDOGREL BISULFATE
     Indication: PRODUCT USED FOR UNKNOWN INDICATION
     Dosage: 75 MG, UNK
     Route: 048
     Dates: start: 20160429
  11. ENTRESTO [Suspect]
     Active Substance: SACUBITRIL\VALSARTAN
     Indication: CARDIAC FAILURE
     Dosage: 24/26 MG (24 MG SACUBITRIL AND 26MG VALSARTAN) BID
     Route: 048
     Dates: start: 20160815, end: 20161006

REACTIONS (27)
  - Chest pain [Recovered/Resolved]
  - Dyspnoea [Not Recovered/Not Resolved]
  - Dizziness [Not Recovered/Not Resolved]
  - Cough [Recovered/Resolved]
  - Blood creatinine increased [Not Recovered/Not Resolved]
  - Memory impairment [Unknown]
  - Balance disorder [Recovered/Resolved]
  - Pollakiuria [Not Recovered/Not Resolved]
  - Oedema [Not Recovered/Not Resolved]
  - Hyperhidrosis [Recovered/Resolved]
  - Weight decreased [Not Recovered/Not Resolved]
  - Hypokalaemia [Recovered/Resolved]
  - Pain in extremity [Not Recovered/Not Resolved]
  - Amnesia [Not Recovered/Not Resolved]
  - Orthostatic hypotension [Recovering/Resolving]
  - Fatigue [Recovered/Resolved]
  - Haemorrhoids [Recovered/Resolved]
  - Productive cough [Recovered/Resolved]
  - Dizziness [Recovered/Resolved]
  - Chest pain [Recovered/Resolved]
  - Weight increased [Recovered/Resolved]
  - Orthostatic hypotension [Recovered/Resolved]
  - Fluid overload [Not Recovered/Not Resolved]
  - Heart rate irregular [Recovered/Resolved]
  - Back pain [Not Recovered/Not Resolved]
  - Weight increased [Recovering/Resolving]
  - Hyperhidrosis [Not Recovered/Not Resolved]

NARRATIVE: CASE EVENT DATE: 20161019
